FAERS Safety Report 10815049 (Version 2)
Quarter: 2015Q1

REPORT INFORMATION
  Report Type: Spontaneous
  Country: AU (occurrence: AU)
  Receive Date: 20150218
  Receipt Date: 20150302
  Transmission Date: 20150721
  Serious: Yes (Other)
  Sender: FDA-Public Use
  Company Number: AU-PFIZER INC-2015057719

PATIENT
  Age: 65 Year
  Sex: Female

DRUGS (1)
  1. PHENYTOIN. [Suspect]
     Active Substance: PHENYTOIN
     Indication: ALCOHOLIC SEIZURE
     Dosage: 100 MG, DAILY

REACTIONS (4)
  - Anticonvulsant drug level above therapeutic [Unknown]
  - Gamma-glutamyltransferase increased [Unknown]
  - Toxicity to various agents [Recovered/Resolved]
  - Nystagmus [Unknown]
